FAERS Safety Report 7450889-7 (Version None)
Quarter: 2011Q2

REPORT INFORMATION
  Report Type: 
  Country: None (occurrence: None)
  Receive Date: 20110429
  Receipt Date: 20110429
  Transmission Date: 20111010
  Serious: Yes (Hospitalization)
  Sender: FDA-Public Use
  Company Number: None

PATIENT
  Age: 86 Year
  Sex: Female
  Weight: 48 kg

DRUGS (2)
  1. MIRTAZAPINE [Suspect]
     Indication: PRODUCT USED FOR UNKNOWN INDICATION
     Dosage: 7.5 MG 1 Q HS PO
     Route: 048
     Dates: start: 20100923, end: 20100923
  2. TEMAZEPAM [Suspect]
     Indication: PRODUCT USED FOR UNKNOWN INDICATION
     Dosage: 30 MG 1 Q HS PO
     Route: 048
     Dates: start: 20100923, end: 20100923

REACTIONS (3)
  - AGITATION [None]
  - CONFUSIONAL STATE [None]
  - ANXIETY [None]
